FAERS Safety Report 14150699 (Version 1)
Quarter: 2017Q4

REPORT INFORMATION
  Report Type: Report from Study
  Country: NL (occurrence: NL)
  Receive Date: 20171102
  Receipt Date: 20171102
  Transmission Date: 20180321
  Serious: Yes (Life-Threatening, Hospitalization)
  Sender: FDA-Public Use
  Company Number: NL-UNICHEM LABORATORIES LIMITED-UCM201710-000254

PATIENT
  Age: 4 Year
  Sex: Female

DRUGS (3)
  1. FORADIL [Concomitant]
     Active Substance: FORMOTEROL FUMARATE
  2. PULMICORT TURBUHALER [Concomitant]
     Active Substance: BUDESONIDE
  3. MONTELUKAST [Suspect]
     Active Substance: MONTELUKAST SODIUM

REACTIONS (2)
  - Eosinophilic granulomatosis with polyangiitis [Recovered/Resolved]
  - Angioedema [Recovered/Resolved]
